FAERS Safety Report 25595593 (Version 3)
Quarter: 2025Q3

REPORT INFORMATION
  Report Type: Spontaneous
  Country: US (occurrence: US)
  Receive Date: 20250723
  Receipt Date: 20250805
  Transmission Date: 20251021
  Serious: No
  Sender: LUPIN
  Company Number: US-LUPIN PHARMACEUTICALS INC.-2025-06252

PATIENT

DRUGS (2)
  1. ALBUTEROL SULFATE [Suspect]
     Active Substance: ALBUTEROL SULFATE
     Indication: Asthma
  2. MONTELUKAST [Concomitant]
     Active Substance: MONTELUKAST
     Indication: Product used for unknown indication
     Route: 065

REACTIONS (9)
  - Asthma [Unknown]
  - Wrong technique in product usage process [Unknown]
  - Product preparation error [Unknown]
  - Therapeutic product effect delayed [Unknown]
  - Product substitution issue [Unknown]
  - Device deposit issue [Unknown]
  - Wrong technique in device usage process [Unknown]
  - Product lot number issue [Unknown]
  - Product expiration date issue [Unknown]
